FAERS Safety Report 13940062 (Version 1)
Quarter: 2017Q3

REPORT INFORMATION
  Report Type: Spontaneous
  Country: CA (occurrence: CA)
  Receive Date: 20170906
  Receipt Date: 20170906
  Transmission Date: 20171127
  Serious: Yes (Hospitalization, Other)
  Sender: FDA-Public Use
  Company Number: CA-AMGEN-CANSP2017132594

PATIENT
  Age: 59 Year
  Sex: Female

DRUGS (10)
  1. REPATHA [Suspect]
     Active Substance: EVOLOCUMAB
     Indication: PRODUCT USED FOR UNKNOWN INDICATION
     Dosage: Q2WK
     Route: 065
  2. NICORETTE [Concomitant]
     Active Substance: NICOTINE
  3. COLACE [Concomitant]
     Active Substance: DOCUSATE SODIUM
  4. DILAUDID [Concomitant]
     Active Substance: HYDROMORPHONE HYDROCHLORIDE
  5. GRAVOL [Concomitant]
     Active Substance: DIMENHYDRINATE
  6. ZOFRAN [Concomitant]
     Active Substance: ONDANSETRON HYDROCHLORIDE
     Dosage: UNK UNK, AS NECESSARY
  7. LAX-A-DAY [Concomitant]
  8. PANTOLOC [Concomitant]
     Active Substance: PANTOPRAZOLE SODIUM
  9. TYLENOL [Concomitant]
     Active Substance: ACETAMINOPHEN
     Dosage: UNK UNK, AS NECESSARY
  10. LYRICA [Concomitant]
     Active Substance: PREGABALIN

REACTIONS (1)
  - Pancreatic carcinoma [Unknown]
